FAERS Safety Report 21411541 (Version 1)
Quarter: 2022Q4

REPORT INFORMATION
  Report Type: Spontaneous
  Country: FR (occurrence: FR)
  Receive Date: 20221005
  Receipt Date: 20221005
  Transmission Date: 20230113
  Serious: Yes (Other)
  Sender: FDA-Public Use
  Company Number: None

PATIENT
  Age: 36 Year
  Sex: Male

DRUGS (9)
  1. TRAMADOL [Suspect]
     Active Substance: TRAMADOL
     Indication: Pain
     Dosage: TRAMADOL (CHLORHYDRATE DE); UNIT DOSE: 150MG ; FREQUENCY TIME: 1DAY  ; DURATION: 1DAY
     Dates: start: 20220807, end: 20220807
  2. CEFTRIAXONE [Suspect]
     Active Substance: CEFTRIAXONE
     Indication: Exposure to communicable disease
     Dosage: CEFTRIAXONE BASE; UNIT DOSE: 1G  ; FREQUENCY TIME: 1DAY  ; DURATION: 1DAY
     Dates: start: 20220806, end: 20220807
  3. DOXYCYCLINE [Suspect]
     Active Substance: DOXYCYCLINE
     Indication: Exposure to communicable disease
     Dosage: UNIT DOSE: 200MG  ; FREQUENCY TIME: 1DAY ; DURATION: 3DAYS
     Dates: start: 20220805, end: 20220808
  4. METRONIDAZOLE [Suspect]
     Active Substance: METRONIDAZOLE
     Indication: Infection
     Dosage: UNIT DOSE:  1500MG ; FREQUENCY TIME: 1DAY  ; DURATION: 2DAYS
     Dates: start: 20220806, end: 20220808
  5. CEFOTAXIME [Suspect]
     Active Substance: CEFOTAXIME SODIUM
     Indication: Antibiotic therapy
     Dosage: CEFOTAXIME BASE; UNIT DOSE: 6G  ; FREQUENCY TIME: 1DAY  ; DURATION: 1DAY
     Dates: start: 20220807, end: 20220808
  6. ACETAMINOPHEN [Concomitant]
     Active Substance: ACETAMINOPHEN
     Indication: Pain
     Dosage: UNIT DOSE:  4G ; FREQUENCY TIME: 1DAY  ; THERAPY START DATE: ASKU
  7. AUGMENTIN [Concomitant]
     Active Substance: AMOXICILLIN\CLAVULANATE POTASSIUM
     Indication: Superinfection bacterial
     Dosage: UNIT DOSE: 3G  ; FREQUENCY TIME: 1DAY  ; DURATION: 1DAY
     Dates: start: 20220805, end: 20220805
  8. AUGMENTIN [Concomitant]
     Active Substance: AMOXICILLIN\CLAVULANATE POTASSIUM
     Dosage: UNIT DOSE: 3G  ; FREQUENCY TIME: 1DAY  ; DURATION: 21DAYS
     Dates: start: 20220808, end: 20220829
  9. TECOVIRIMAT MONOHYDRATE [Concomitant]
     Indication: Monkeypox
     Dosage: UNIT DOSE: 1200MG  ; FREQUENCY TIME: 1DAY  ; DURATION: 14DAYS
     Dates: start: 20220805, end: 20220819

REACTIONS (1)
  - Hepatic cytolysis [Recovered/Resolved]

NARRATIVE: CASE EVENT DATE: 20220806
